FAERS Safety Report 5822773-3 (Version None)
Quarter: 2008Q3

REPORT INFORMATION
  Report Type: 
  Country: None (occurrence: None)
  Receive Date: 20080725
  Receipt Date: 20071003
  Transmission Date: 20090109
  Serious: No
  Sender: FDA-Public Use
  Company Number: US-AMGEN-KDL246561

PATIENT
  Age: 27 Year
  Sex: Female
  Weight: 62.143 kg

DRUGS (8)
  1. EPOGEN [Suspect]
     Indication: RENAL FAILURE CHRONIC
     Route: 058
     Dates: start: 20070926
  2. IRON [Concomitant]
     Route: 048
  3. PLAQUENIL [Concomitant]
     Route: 048
  4. VASOTEC [Concomitant]
  5. ZOLOFT [Concomitant]
  6. TUMS [Concomitant]
  7. PREDNISONE TAB [Concomitant]
     Dates: start: 20070926
  8. ASPIRIN [Concomitant]

REACTIONS (2)
  - MENORRHAGIA [None]
  - MENSTRUAL DISORDER [None]
